FAERS Safety Report 8891755 (Version 1)
Quarter: 2012Q4

REPORT INFORMATION
  Report Type: 
  Country: US (occurrence: US)
  Receive Date: 20121107
  Receipt Date: 20121107
  Transmission Date: 20130627
  Serious: No
  Sender: FDA-Public Use
  Company Number: US-AMGEN-USASP2011056354

PATIENT
  Age: 45 Year
  Sex: Female

DRUGS (2)
  1. ENBREL [Suspect]
     Indication: RHEUMATOID ARTHRITIS
     Dosage: 50 mg, qwk
     Dates: start: 20060101, end: 20111008
  2. CIMZIA [Concomitant]

REACTIONS (7)
  - Rheumatoid factor increased [Unknown]
  - Influenza like illness [Unknown]
  - Pain [Unknown]
  - Joint swelling [Unknown]
  - Lymphadenopathy [Unknown]
  - Pyrexia [Unknown]
  - Injection site pain [Unknown]
